FAERS Safety Report 8552780-1 (Version None)
Quarter: 2012Q3

REPORT INFORMATION
  Report Type: 
  Country: None (occurrence: None)
  Receive Date: 20120731
  Receipt Date: 20120725
  Transmission Date: 20120928
  Serious: Yes (Other)
  Sender: FDA-Public Use
  Company Number: PHHY2012BR065138

PATIENT
  Sex: Male
  Weight: 86 kg

DRUGS (5)
  1. ASPIRIN [Concomitant]
     Indication: ANTICOAGULANT THERAPY
     Dosage: 325 MG, DAILY
     Route: 048
     Dates: start: 20080101
  2. SIMVACOR [Concomitant]
     Indication: BLOOD CHOLESTEROL INCREASED
     Dosage: 40 MG, DAILY
     Route: 048
  3. ISOSORBIDE MONONITRATE [Concomitant]
     Indication: CARDIAC DISORDER
     Dosage: 20 MG, BID
     Route: 048
     Dates: start: 20080101
  4. FORMOTEROL FUMARATE [Suspect]
     Indication: INTERSTITIAL LUNG DISEASE
     Dosage: 1INHALATION OF EACH TREATMENT TWICE DAILY, AT MORNING AND AT NIGHT
     Dates: start: 20080101, end: 20120725
  5. LOSARTAN POTASSIUM [Concomitant]
     Indication: HYPERTENSION
     Dosage: 50 MG, BID
     Route: 048
     Dates: start: 20080101

REACTIONS (5)
  - PAIN IN EXTREMITY [None]
  - WRONG TECHNIQUE IN DRUG USAGE PROCESS [None]
  - FATIGUE [None]
  - INCORRECT DOSE ADMINISTERED [None]
  - INGUINAL HERNIA [None]
